FAERS Safety Report 6014843-4 (Version None)
Quarter: 2008Q4

REPORT INFORMATION
  Report Type: 
  Country: None (occurrence: None)
  Receive Date: 20081219
  Receipt Date: 20081209
  Transmission Date: 20090506
  Serious: Yes (Other)
  Sender: FDA-Public Use
  Company Number: SE-PFIZER INC-2008084895

PATIENT

DRUGS (4)
  1. LYRICA [Suspect]
     Indication: EPILEPSY
     Dosage: UNK
     Dates: start: 20070912, end: 20081110
  2. LYRICA [Suspect]
     Indication: ANXIETY
  3. ZYPREXA [Concomitant]
     Dosage: 12.5 MG, 1X/DAY
     Dates: start: 20020101
  4. VALPROATE SODIUM [Concomitant]
     Dosage: 300 MG, 3X/DAY

REACTIONS (3)
  - AGGRESSION [None]
  - EUPHORIC MOOD [None]
  - IRRITABILITY [None]
